FAERS Safety Report 9693741 (Version 3)
Quarter: 2013Q4

REPORT INFORMATION
  Report Type: Spontaneous
  Country: SG (occurrence: None)
  Receive Date: 20131114
  Receipt Date: 20131212
  Transmission Date: 20140711
  Serious: Yes (Hospitalization)
  Sender: FDA-Public Use
  Company Number: SYM-2013-12676

PATIENT
  Age: 71 Year
  Sex: Male

DRUGS (18)
  1. 5 FU (FLUOROURACIL) (SOLUTION FOR INFUSION) (FLUOROURACIL) [Suspect]
     Indication: COLORECTAL CANCER METASTATIC
     Route: 040
     Dates: start: 20130305, end: 20130305
  2. IRINOTECAN [Suspect]
     Indication: COLORECTAL CANCER METASTATIC
     Route: 041
     Dates: start: 20130305, end: 20130305
  3. LEUCOVORIN (FOLINIC ACID) (SOLUTION FOR INFUSION) (FOLINIC ACID) [Suspect]
     Indication: COLORECTAL CANCER METASTATIC
     Route: 041
     Dates: start: 20130305, end: 20130305
  4. BLINDED THERAPY (OTHER THERAPEUTIC PRODUCTS) (SOLUTION FOR INFUSION) (NULL) [Suspect]
     Indication: COLORECTAL CANCER METASTATIC
     Route: 041
     Dates: start: 20130305, end: 20130305
  5. AMLODIPINE (AMLODIPINE) [Concomitant]
  6. DEXAMETHASONE (DEXAMETHASONE) [Concomitant]
  7. BENADRYL (DIPHENHYDRAMINE HYDROCHLORIDE) [Concomitant]
  8. PARACETAMOL (PARACETAMOL) [Concomitant]
  9. ONDANSETRON (ONDANSETRON) [Concomitant]
  10. ATROPINE (ATROPINE) [Concomitant]
  11. DAFLON (DIOSMIN) [Concomitant]
  12. LIGNOCAINE (LIDOCAINE) [Concomitant]
  13. SENNA (SENNA ALEXANDRINA) [Concomitant]
  14. LACTULOSE (LACTULOSE) [Concomitant]
  15. TRAMADOL (TRAMADOL) [Concomitant]
  16. FLUIMUCIL (ACETYLCYSTEINE) [Concomitant]
  17. UREA (UREA) [Concomitant]
  18. SANGOBION (SANGOBION) [Concomitant]

REACTIONS (4)
  - Abdominal pain [None]
  - Constipation [None]
  - Rash [None]
  - Herpes zoster [None]
